FAERS Safety Report 20521055 (Version 11)
Quarter: 2023Q4

REPORT INFORMATION
  Report Type: Spontaneous
  Country: CA (occurrence: CA)
  Receive Date: 20220225
  Receipt Date: 20231206
  Transmission Date: 20240110
  Serious: Yes (Hospitalization, Other)
  Sender: FDA-Public Use
  Company Number: CA-CELLTRION INC.-2022CA002203

PATIENT

DRUGS (20)
  1. INFLECTRA [Suspect]
     Active Substance: INFLIXIMAB-DYYB
     Indication: Colitis ulcerative
     Dosage: 480 MG (10MG/KG), FIRST INDUCTION DOSE- RECEIVED IN HOSPITAL
     Route: 042
     Dates: start: 20220208
  2. INFLECTRA [Suspect]
     Active Substance: INFLIXIMAB-DYYB
     Dosage: 500 MG , INDUCTION AT Q 0 , 2, 6 THEN EVERY 8 WEEKS
     Route: 042
     Dates: start: 20220222
  3. INFLECTRA [Suspect]
     Active Substance: INFLIXIMAB-DYYB
     Dosage: 500 MG , INDUCTION AT Q 0 , 2, 6 THEN EVERY 8 WEEKS
     Route: 042
     Dates: start: 20220314
  4. INFLECTRA [Suspect]
     Active Substance: INFLIXIMAB-DYYB
     Dosage: 500 MG INDUCTION AT Q 0 , 2, 6 THEN EVERY 8 WEEKS
     Route: 042
     Dates: start: 20220510
  5. INFLECTRA [Suspect]
     Active Substance: INFLIXIMAB-DYYB
     Dosage: 500 MG INDUCTION AT Q 0 , 2, 6 THEN EVERY 8 WEEKS
     Route: 042
     Dates: start: 20220708
  6. INFLECTRA [Suspect]
     Active Substance: INFLIXIMAB-DYYB
     Dosage: 500 MG INDUCTION AT Q 0 , 2, 6 THEN EVERY 8 WEEKS
     Route: 042
     Dates: start: 20220829
  7. INFLECTRA [Suspect]
     Active Substance: INFLIXIMAB-DYYB
     Dosage: 500 MG INDUCTION AT Q 0 , 2, 6 THEN EVERY 8 WEEKS
     Route: 042
     Dates: start: 20221219
  8. INFLECTRA [Suspect]
     Active Substance: INFLIXIMAB-DYYB
     Dosage: 500 MG INDUCTION AT Q 0 , 2, 6 THEN EVERY 8 WEEKS
     Route: 042
     Dates: start: 20230213
  9. INFLECTRA [Suspect]
     Active Substance: INFLIXIMAB-DYYB
     Dosage: 500 MG INDUCTION AT Q 0 , 2, 6 THEN EVERY 8 WEEKS
     Route: 042
     Dates: start: 20230410
  10. INFLECTRA [Suspect]
     Active Substance: INFLIXIMAB-DYYB
     Dosage: 500 MG EVERY 8 WEEKS
     Route: 042
     Dates: start: 20230605
  11. INFLECTRA [Suspect]
     Active Substance: INFLIXIMAB-DYYB
     Dosage: 500 MG EVERY 8 WEEKS
     Route: 042
     Dates: start: 20230926
  12. INFLECTRA [Suspect]
     Active Substance: INFLIXIMAB-DYYB
     Dosage: 500MG, AFTER 8 WEEKS AND 6 DAYS (EVERY 8 WEEKS)
     Route: 042
     Dates: start: 20231127
  13. FERROUS GLUCONATE [Concomitant]
     Active Substance: FERROUS GLUCONATE
     Dosage: 300 MG, 1X/DAY
     Route: 065
  14. IRON [Concomitant]
     Active Substance: IRON
     Dosage: UNK, 1 DOSE OF IV IRON
     Route: 042
  15. IRON [Concomitant]
     Active Substance: IRON
     Dosage: 1 DOSE OF IV IRON
     Route: 042
  16. PREDNISONE [Concomitant]
     Active Substance: PREDNISONE
     Dosage: 40 MG, 1X/DAY (40MG OD X 11 DAYS, THEN TAPERING BY 5MG QWEEKLY UNTIL FINISHED)
     Route: 065
  17. PREDNISONE [Concomitant]
     Active Substance: PREDNISONE
     Dosage: 5 MG, WEEKLY (TAPER) (FOR 2 WEEKS )
     Route: 048
     Dates: start: 20220211
  18. PREDNISONE [Concomitant]
     Active Substance: PREDNISONE
     Dosage: 40 MG, TAPERING
     Route: 048
     Dates: start: 20220211
  19. CHOLECALCIFEROL [Concomitant]
     Active Substance: CHOLECALCIFEROL
     Dosage: 2000 IU, 1X/DAY
     Route: 065
  20. CHOLECALCIFEROL [Concomitant]
     Active Substance: CHOLECALCIFEROL
     Dosage: 1 DF
     Route: 065

REACTIONS (10)
  - Colectomy [Not Recovered/Not Resolved]
  - Colitis ulcerative [Unknown]
  - Presyncope [Unknown]
  - Haemoglobin decreased [Recovering/Resolving]
  - Faecaloma [Unknown]
  - Condition aggravated [Not Recovered/Not Resolved]
  - Abdominal discomfort [Recovered/Resolved]
  - Abdominal distension [Unknown]
  - Off label use [Unknown]
  - Inappropriate schedule of product administration [Unknown]

NARRATIVE: CASE EVENT DATE: 20220101
